FAERS Safety Report 4933874-6 (Version None)
Quarter: 2006Q1

REPORT INFORMATION
  Report Type: 
  Country: None (occurrence: None)
  Receive Date: 20060306
  Receipt Date: 20050902
  Transmission Date: 20060701
  Serious: Yes (Death, Hospitalization)
  Sender: FDA-Public Use
  Company Number: US-MERCK-0509USA00618

PATIENT
  Age: 53 Year
  Sex: Male
  Weight: 96 kg

DRUGS (3)
  1. VIOXX [Suspect]
     Indication: PAIN
     Route: 048
     Dates: start: 20000301, end: 20020830
  2. VIOXX [Suspect]
     Indication: JOINT SWELLING
     Route: 048
     Dates: start: 20000301, end: 20020830
  3. AMITRIPTYLINE HYDROCHLORIDE [Concomitant]
     Route: 065

REACTIONS (4)
  - BRONCHITIS [None]
  - CHEST PAIN [None]
  - DEATH [None]
  - GASTROINTESTINAL HAEMORRHAGE [None]
